FAERS Safety Report 9414474 (Version 2)
Quarter: 2013Q3

REPORT INFORMATION
  Report Type: Spontaneous
  Country: DE (occurrence: DE)
  Receive Date: 20130723
  Receipt Date: 20130820
  Transmission Date: 20140515
  Serious: Yes (Life-Threatening, Hospitalization, Disabling)
  Sender: FDA-Public Use
  Company Number: DE-ROCHE-1251152

PATIENT
  Age: 72 Year
  Sex: Female

DRUGS (2)
  1. ROACTEMRA [Suspect]
     Indication: RHEUMATOID ARTHRITIS
     Route: 042
     Dates: start: 20111012, end: 20120112
  2. PREDNISOLONE [Concomitant]
     Indication: RHEUMATOID ARTHRITIS
     Route: 048

REACTIONS (17)
  - Renal failure acute [Recovered/Resolved with Sequelae]
  - Acute respiratory distress syndrome [Recovered/Resolved with Sequelae]
  - Arm amputation [Recovered/Resolved with Sequelae]
  - Necrotising fasciitis [Recovered/Resolved with Sequelae]
  - Sepsis [Recovered/Resolved with Sequelae]
  - Septic shock [Recovered/Resolved with Sequelae]
  - Pneumonia [Unknown]
  - Urinary tract infection [Unknown]
  - Ventricular tachycardia [Unknown]
  - Atrial fibrillation [Unknown]
  - Pleural effusion [Unknown]
  - Ulcer [Unknown]
  - Haematoma [Unknown]
  - Cholecystitis acute [Unknown]
  - Critical illness polyneuropathy [Unknown]
  - Anticholinergic syndrome [Unknown]
  - Jugular vein thrombosis [Unknown]
